FAERS Safety Report 4646903-4 (Version None)
Quarter: 2005Q2

REPORT INFORMATION
  Report Type: 
  Country: None (occurrence: None)
  Receive Date: 20050427
  Receipt Date: 20050218
  Transmission Date: 20051028
  Serious: Yes (Life-Threatening, Hospitalization, Disabling, Other)
  Sender: FDA-Public Use
  Company Number: US-MERCK-0502USA02424

PATIENT
  Sex: Male
  Weight: 68 kg

DRUGS (7)
  1. VIOXX [Suspect]
     Route: 048
  2. VIOXX [Suspect]
     Route: 048
  3. LASIX [Concomitant]
     Route: 065
  4. ZOCOR [Concomitant]
     Route: 065
  5. ACCUPRIL [Concomitant]
     Route: 065
  6. SYNTHROID [Concomitant]
     Route: 065
  7. IMDUR [Concomitant]
     Route: 065

REACTIONS (4)
  - CEREBROVASCULAR ACCIDENT [None]
  - LOSS OF CONTROL OF LEGS [None]
  - MYOCARDIAL INFARCTION [None]
  - SURGERY [None]
